FAERS Safety Report 10080989 (Version 2)
Quarter: 2014Q2

REPORT INFORMATION
  Report Type: Spontaneous
  Country: PH (occurrence: PH)
  Receive Date: 20140416
  Receipt Date: 20140520
  Transmission Date: 20141212
  Serious: Yes (Hospitalization)
  Sender: FDA-Public Use
  Company Number: PH-009507513-1404PHL009047

PATIENT
  Sex: Female

DRUGS (6)
  1. JANUVIA [Suspect]
     Dosage: 100 MG, QD
     Route: 048
     Dates: start: 201311
  2. METFORMIN [Concomitant]
     Dosage: UNK
  3. INSULIN [Concomitant]
  4. SERETIDE [Concomitant]
  5. ALBUTEROL SULFATE [Concomitant]
     Route: 055
  6. CORTICOSTEROIDS (UNSPECIFIED) [Concomitant]

REACTIONS (3)
  - Asthma [Unknown]
  - Cholelithiasis [Unknown]
  - Anxiety [Unknown]
